FAERS Safety Report 23367083 (Version 1)
Quarter: 2024Q1

REPORT INFORMATION
  Report Type: Spontaneous
  Country: US (occurrence: None)
  Receive Date: 20240104
  Receipt Date: 20240104
  Transmission Date: 20240410
  Serious: Yes (Life-Threatening)
  Sender: FDA-Public Use
  Company Number: None

PATIENT
  Age: 33 Year
  Sex: Female
  Weight: 119.5 kg

DRUGS (2)
  1. CEFAZOLIN [Suspect]
     Active Substance: CEFAZOLIN
     Indication: Preoperative care
     Dosage: OTHER FREQUENCY : ONCE PRESURGICAL;?
     Route: 042
     Dates: start: 20230917, end: 20230917
  2. CEFAZOLIN [Suspect]
     Active Substance: CEFAZOLIN
     Indication: Prophylaxis

REACTIONS (2)
  - Post procedural complication [None]
  - Anaphylactic shock [None]

NARRATIVE: CASE EVENT DATE: 20230918
